FAERS Safety Report 14624995 (Version 1)
Quarter: 2018Q1

REPORT INFORMATION
  Report Type: Spontaneous
  Country: US (occurrence: US)
  Receive Date: 20180312
  Receipt Date: 20180312
  Transmission Date: 20180509
  Serious: No
  Sender: FDA-Public Use
  Company Number: US-PFIZER INC-2018091138

PATIENT
  Age: 9 Year
  Sex: Female
  Weight: 44.45 kg

DRUGS (3)
  1. HYDROXYZINE HCL [Concomitant]
     Active Substance: HYDROXYZINE HYDROCHLORIDE
     Indication: ECZEMA
     Dosage: 125 MG, DAILY [2 IN MORNING, 1 AT LUNCH, AND 2 AT NIGHT]
     Route: 048
  2. QUILLICHEW ER [Suspect]
     Active Substance: METHYLPHENIDATE HYDROCHLORIDE
     Indication: DISTURBANCE IN ATTENTION
     Dosage: 30 MG, 1X/DAY (ONCE DAILY)
     Route: 048
  3. HYDROXYZINE HCL [Concomitant]
     Active Substance: HYDROXYZINE HYDROCHLORIDE
     Indication: PRURITUS

REACTIONS (2)
  - Disturbance in attention [Unknown]
  - Condition aggravated [Unknown]

NARRATIVE: CASE EVENT DATE: 201802
